FAERS Safety Report 19847467 (Version 1)
Quarter: 2021Q3

REPORT INFORMATION
  Report Type: Spontaneous
  Country: US (occurrence: US)
  Receive Date: 20210917
  Receipt Date: 20210917
  Transmission Date: 20211014
  Serious: No
  Sender: FDA-Public Use
  Company Number: US-PFIZER INC-202101035184

PATIENT
  Age: 36 Year
  Sex: Female

DRUGS (1)
  1. PREGABALIN. [Suspect]
     Active Substance: PREGABALIN
     Dosage: 200 MG, 3X/DAY (SIG: 1 CAPSULE ORAL THREE TIMES A DAY AS DIRECTED)
     Route: 048

REACTIONS (1)
  - Drug ineffective [Unknown]
